FAERS Safety Report 6243241-3 (Version None)
Quarter: 2009Q2

REPORT INFORMATION
  Report Type: 
  Country: None (occurrence: None)
  Receive Date: 20090624
  Receipt Date: 20090619
  Transmission Date: 20091009
  Serious: Yes (Hospitalization)
  Sender: FDA-Public Use
  Company Number: JP-EISAI INC.-E2020-04805-SPO-JP

PATIENT
  Sex: Male

DRUGS (2)
  1. ARICEPT [Suspect]
     Indication: DEMENTIA
     Route: 048
     Dates: start: 20090401, end: 20090424
  2. ARICEPT [Suspect]
     Route: 048
     Dates: start: 20090425, end: 20090430

REACTIONS (1)
  - RHABDOMYOLYSIS [None]
